FAERS Safety Report 7103322-9 (Version None)
Quarter: 2010Q4

REPORT INFORMATION
  Report Type: 
  Country: None (occurrence: None)
  Receive Date: 20101115
  Receipt Date: 20101101
  Transmission Date: 20110411
  Serious: Yes (Hospitalization, Other)
  Sender: FDA-Public Use
  Company Number: US-BAYER-201026220NA

PATIENT
  Age: 76 Year
  Sex: Female
  Weight: 91 kg

DRUGS (10)
  1. EOVIST [Suspect]
     Indication: NUCLEAR MAGNETIC RESONANCE IMAGING
     Dosage: TOTAL DAILY DOSE: 9 ML  UNIT DOSE: 20 ML
     Route: 042
     Dates: start: 20100621, end: 20100621
  2. POTASSIUM CHLORIDE [Concomitant]
  3. DIOVAN [Concomitant]
  4. LASIX [Concomitant]
  5. CALTRATE [Concomitant]
  6. PRILOSEC [Concomitant]
  7. METFORMIN HCL [Concomitant]
  8. COUMADIN [Concomitant]
  9. METOPROLOL [Concomitant]
  10. NASONEX [Concomitant]

REACTIONS (8)
  - DERMATITIS BULLOUS [None]
  - DIZZINESS [None]
  - DYSPNOEA [None]
  - FEELING JITTERY [None]
  - HYPERSENSITIVITY [None]
  - PALPITATIONS [None]
  - PHARYNGEAL OEDEMA [None]
  - THROAT TIGHTNESS [None]
